FAERS Safety Report 4443655-8 (Version None)
Quarter: 2004Q3

REPORT INFORMATION
  Report Type: 
  Country: None (occurrence: None)
  Receive Date: 20040908
  Receipt Date: 20040907
  Transmission Date: 20050211
  Serious: Yes (Disabling)
  Sender: FDA-Public Use
  Company Number: US-GLAXOSMITHKLINE-A0524762A

PATIENT
  Age: 64 Year
  Sex: Female

DRUGS (7)
  1. WELLBUTRIN [Suspect]
     Indication: DEPRESSION
     Dosage: 200MG TWICE PER DAY
     Route: 048
  2. SEROQUEL [Concomitant]
  3. ZINC SULFATE [Concomitant]
  4. LEVOTHYROXINE SODIUM [Concomitant]
  5. URSODIOL [Concomitant]
  6. PROPRANOLOL [Concomitant]
  7. RANITIDINE [Concomitant]

REACTIONS (1)
  - NYSTAGMUS [None]
